FAERS Safety Report 18310417 (Version 2)
Quarter: 2020Q4

REPORT INFORMATION
  Report Type: Spontaneous
  Country: US (occurrence: US)
  Receive Date: 20200925
  Receipt Date: 20201023
  Transmission Date: 20210113
  Serious: Yes (Hospitalization, Other)
  Sender: FDA-Public Use
  Company Number: US-ALKEM LABORATORIES LIMITED-US-ALKEM-2020-06064

PATIENT
  Age: 14 Year
  Sex: Male

DRUGS (1)
  1. MINOCYCLINE [Suspect]
     Active Substance: MINOCYCLINE HYDROCHLORIDE
     Indication: ACNE
     Dosage: 100 MILLIGRAM, BID
     Route: 065

REACTIONS (8)
  - Toxic epidermal necrolysis [Recovering/Resolving]
  - Delirium [Unknown]
  - Symblepharon [Unknown]
  - Corneal degeneration [Unknown]
  - Sinus tachycardia [Unknown]
  - Tachycardia [Unknown]
  - Stevens-Johnson syndrome [Recovering/Resolving]
  - Hypermetabolism [Unknown]
